FAERS Safety Report 14695515 (Version 8)
Quarter: 2018Q2

REPORT INFORMATION
  Report Type: Spontaneous
  Country: FR (occurrence: FR)
  Receive Date: 20180329
  Receipt Date: 20180626
  Transmission Date: 20180711
  Serious: Yes (Other)
  Sender: FDA-Public Use
  Company Number: FR-PFIZER INC-2018125444

PATIENT
  Age: 60 Year
  Sex: Male

DRUGS (7)
  1. MONTELUKAST [Concomitant]
     Active Substance: MONTELUKAST SODIUM
     Dosage: 10 MG, DAILY
  2. FLUTICASONE. [Concomitant]
     Active Substance: FLUTICASONE
     Dosage: 1 MG, DAILY
  3. AZITHROMYCIN ANHYDROUS. [Suspect]
     Active Substance: AZITHROMYCIN ANHYDROUS
     Indication: PROPHYLAXIS
     Dosage: 250 MG, ALTERNATE DAY (EVERY OTHER DAY FOR THREE MONTHS)
  4. SALMETEROL [Concomitant]
     Active Substance: SALMETEROL
     Dosage: 0.1 MG, DAILY
  5. SALBUTAMOL [Concomitant]
     Active Substance: ALBUTEROL
     Dosage: SIX PUFFS A DAY
  6. LEVOCETIRIZINE [Concomitant]
     Active Substance: LEVOCETIRIZINE
     Dosage: 5 MG, DAILY
  7. FLUTICASONE. [Concomitant]
     Active Substance: FLUTICASONE
     Dosage: 0.055 MG, DAILY
     Route: 045

REACTIONS (3)
  - Hypogammaglobulinaemia [Unknown]
  - Sinusitis [Unknown]
  - Drug ineffective [Unknown]
